FAERS Safety Report 6492909-2 (Version None)
Quarter: 2009Q4

REPORT INFORMATION
  Report Type: 
  Country: None (occurrence: None)
  Receive Date: 20091214
  Receipt Date: 20091203
  Transmission Date: 20100525
  Serious: Yes (Other)
  Sender: FDA-Public Use
  Company Number: PHHY2009FR51076

PATIENT
  Sex: Male

DRUGS (4)
  1. RITALIN [Suspect]
     Indication: CATAPLEXY
     Dosage: UNK
     Route: 048
     Dates: start: 20070327
  2. ANAFRANIL [Suspect]
     Indication: CATAPLEXY
     Dosage: UNK
     Route: 048
     Dates: start: 20090327
  3. XYREM [Suspect]
     Indication: CATAPLEXY
     Dosage: 2.25 G, BID
     Route: 048
     Dates: start: 20090327
  4. MODAFINIL [Suspect]
     Indication: CATAPLEXY
     Dosage: UNK
     Route: 048
     Dates: start: 20090327

REACTIONS (2)
  - HALLUCINATION [None]
  - INSOMNIA [None]
